FAERS Safety Report 11323858 (Version 1)
Quarter: 2015Q3

REPORT INFORMATION
  Report Type: Spontaneous
  Country: US (occurrence: US)
  Receive Date: 20150730
  Receipt Date: 20150730
  Transmission Date: 20151125
  Serious: No
  Sender: FDA-Public Use
  Company Number: US-SEBELA IRELAND LIMITED-2014SEB00008

PATIENT
  Age: 64 Year
  Sex: Female

DRUGS (3)
  1. CURAMED (TURMERIC) [Concomitant]
  2. KEFLEX [Concomitant]
     Active Substance: CEPHALEXIN
  3. PRAMOSONE [Suspect]
     Active Substance: HYDROCORTISONE ACETATE\PRAMOXINE HYDROCHLORIDE
     Indication: CYST
     Dosage: UNK, ONCE
     Route: 061
     Dates: start: 20140614, end: 20140614

REACTIONS (9)
  - Eye pain [Not Recovered/Not Resolved]
  - Eye irritation [Not Recovered/Not Resolved]
  - Eye discharge [Not Recovered/Not Resolved]
  - Photophobia [Not Recovered/Not Resolved]
  - Eyelids pruritus [Not Recovered/Not Resolved]
  - Blepharitis [Not Recovered/Not Resolved]
  - Eye pruritus [Recovered/Resolved]
  - Eyelid irritation [None]
  - Staphylococcal infection [Not Recovered/Not Resolved]

NARRATIVE: CASE EVENT DATE: 201406
